FAERS Safety Report 7368465-3 (Version None)
Quarter: 2011Q1

REPORT INFORMATION
  Report Type: 
  Country: None (occurrence: None)
  Receive Date: 20110323
  Receipt Date: 20110321
  Transmission Date: 20110831
  Serious: Yes (Other)
  Sender: FDA-Public Use
  Company Number: IL-PFIZER INC-2011060980

PATIENT
  Age: 44 Year
  Sex: Female

DRUGS (1)
  1. SUTENT [Suspect]
     Indication: OVARIAN CANCER
     Dosage: 50 MG, 14/21 DAY, CYCLE NUMBER 1
     Route: 048

REACTIONS (1)
  - INTESTINAL OBSTRUCTION [None]
